FAERS Safety Report 10234853 (Version 1)
Quarter: 2014Q2

REPORT INFORMATION
  Report Type: Spontaneous
  Country: US (occurrence: US)
  Receive Date: 20140613
  Receipt Date: 20140613
  Transmission Date: 20141212
  Serious: Yes (Other)
  Sender: FDA-Public Use
  Company Number: US-BAYER-2014-083319

PATIENT
  Sex: Female

DRUGS (2)
  1. BETASERON [Suspect]
  2. AVONEX [Suspect]

REACTIONS (2)
  - Liver injury [None]
  - Liver disorder [None]
